FAERS Safety Report 8096517-1 (Version None)
Quarter: 2012Q1

REPORT INFORMATION
  Report Type: 
  Country: None (occurrence: None)
  Receive Date: 20120129
  Receipt Date: 20111202
  Transmission Date: 20120608
  Serious: No
  Sender: FDA-Public Use
  Company Number: US-ABBOTT-11P-163-0880883-00

PATIENT
  Age: 63 Year
  Sex: Male

DRUGS (1)
  1. HUMIRA [Suspect]
     Indication: POLYARTHRITIS
     Dosage: ON HOLD
     Dates: start: 20110501, end: 20111125

REACTIONS (2)
  - RASH [None]
  - HERPES ZOSTER [None]
